FAERS Safety Report 8903084 (Version 2)
Quarter: 2012Q4

REPORT INFORMATION
  Report Type: 
  Country: US (occurrence: US)
  Receive Date: 20121112
  Receipt Date: 20121211
  Transmission Date: 20130627
  Serious: Yes (Other)
  Sender: FDA-Public Use
  Company Number: US-ELI_LILLY_AND_COMPANY-US201211000150

PATIENT
  Sex: Female
  Weight: 83.45 kg

DRUGS (3)
  1. CYMBALTA [Suspect]
     Indication: DEPRESSION
     Dosage: 60 mg, unknown
  2. CLINDAMYCIN [Concomitant]
  3. ACETAMINOPHEN W/CODEINE [Concomitant]

REACTIONS (3)
  - Premature rupture of membranes [Recovered/Resolved]
  - Vaginal haemorrhage [Recovered/Resolved]
  - Exposure during pregnancy [Recovered/Resolved]
